FAERS Safety Report 8954341 (Version 3)
Quarter: 2013Q1

REPORT INFORMATION
  Report Type: Spontaneous
  Country: MX (occurrence: MX)
  Receive Date: 20121207
  Receipt Date: 20130308
  Transmission Date: 20140127
  Serious: Yes (Other)
  Sender: FDA-Public Use
  Company Number: MX-ABBOTT-12P-107-1018867-00

PATIENT
  Age: 40 None
  Sex: Male
  Weight: 75 kg

DRUGS (5)
  1. HUMIRA [Suspect]
     Indication: ANKYLOSING SPONDYLITIS
     Route: 058
     Dates: start: 201101, end: 201212
  2. ACENOCUMARINE [Concomitant]
     Indication: CARDIOMYOPATHY
     Route: 048
     Dates: start: 200905
  3. LEVOTIRACETAM [Concomitant]
     Indication: ENCEPHALITIS
     Route: 048
     Dates: start: 200906
  4. TP DROPS [Concomitant]
     Indication: VASOCONSTRICTION
     Dosage: 1 DROP ON LEFT EYE
     Route: 047
     Dates: start: 2009
  5. IMURAN [Concomitant]
     Indication: UVEITIS
     Route: 048
     Dates: start: 201208

REACTIONS (4)
  - Retinal detachment [Recovering/Resolving]
  - Retinal detachment [Unknown]
  - Uveitis [Not Recovered/Not Resolved]
  - Blindness unilateral [Unknown]
